FAERS Safety Report 7401230-7 (Version None)
Quarter: 2011Q2

REPORT INFORMATION
  Report Type: 
  Country: None (occurrence: None)
  Receive Date: 20110407
  Receipt Date: 20110330
  Transmission Date: 20111010
  Serious: Yes (Other)
  Sender: FDA-Public Use
  Company Number: US-CEPHALON-2011001502

PATIENT
  Sex: Male
  Weight: 132 kg

DRUGS (1)
  1. NUVIGIL [Suspect]
     Indication: NARCOLEPSY
     Route: 048
     Dates: start: 20110324, end: 20110328

REACTIONS (11)
  - AGGRESSION [None]
  - ANXIETY [None]
  - PHARYNGEAL OEDEMA [None]
  - LOGORRHOEA [None]
  - THINKING ABNORMAL [None]
  - CHEST PAIN [None]
  - OROPHARYNGEAL PAIN [None]
  - LIP EXFOLIATION [None]
  - MUSCLE SPASMS [None]
  - DYSPHAGIA [None]
  - MOOD ALTERED [None]
